FAERS Safety Report 9340997 (Version 1)
Quarter: 2013Q2

REPORT INFORMATION
  Report Type: Spontaneous
  Country: CN (occurrence: CN)
  Receive Date: 20130610
  Receipt Date: 20130610
  Transmission Date: 20140414
  Serious: Yes (Life-Threatening, Other)
  Sender: FDA-Public Use
  Company Number: CN-ASTRAZENECA-2013SE41451

PATIENT
  Age: 24364 Day
  Sex: Male
  Weight: 70 kg

DRUGS (1)
  1. ROSUVASTATIN CALCIUM [Suspect]
     Indication: HYPERLIPIDAEMIA
     Route: 048
     Dates: start: 20121123, end: 20121123

REACTIONS (5)
  - Suicide attempt [Recovered/Resolved]
  - Affect lability [Recovered/Resolved]
  - Asphyxia [Recovering/Resolving]
  - Chest discomfort [Recovered/Resolved]
  - Depression [Recovering/Resolving]
